FAERS Safety Report 8491922-3 (Version None)
Quarter: 2012Q3

REPORT INFORMATION
  Report Type: 
  Country: None (occurrence: None)
  Receive Date: 20120706
  Receipt Date: 20111201
  Transmission Date: 20120928
  Serious: No
  Sender: FDA-Public Use
  Company Number: US-GLAXOSMITHKLINE-A0967406A

PATIENT

DRUGS (2)
  1. FLOVENT [Suspect]
     Route: 055
  2. VENTILATION [Concomitant]

REACTIONS (1)
  - DRUG ADMINISTRATION ERROR [None]
